FAERS Safety Report 10511564 (Version 1)
Quarter: 2014Q4

REPORT INFORMATION
  Report Type: Spontaneous
  Country: US (occurrence: US)
  Receive Date: 20141010
  Receipt Date: 20141010
  Transmission Date: 20150528
  Serious: Yes (Other)
  Sender: FDA-Public Use
  Company Number: US-BAYER-2014-149970

PATIENT
  Age: 38 Year
  Sex: Female

DRUGS (1)
  1. MIRENA [Suspect]
     Active Substance: LEVONORGESTREL
     Indication: CONTRACEPTION
     Dosage: 20 MCG/24HR, CONT
     Route: 015
     Dates: start: 200904

REACTIONS (5)
  - Genital haemorrhage [None]
  - Device dislocation [None]
  - Pain [None]
  - Abdominal pain lower [None]
  - Device misuse [None]

NARRATIVE: CASE EVENT DATE: 201408
